FAERS Safety Report 9011715 (Version 3)
Quarter: 2013Q3

REPORT INFORMATION
  Report Type: Spontaneous
  Country: US (occurrence: US)
  Receive Date: 20130114
  Receipt Date: 20130917
  Transmission Date: 20140515
  Serious: Yes (Hospitalization)
  Sender: FDA-Public Use
  Company Number: US-MERCK-1301USA004197

PATIENT
  Age: 51 Year
  Sex: Female

DRUGS (5)
  1. VICTRELIS [Suspect]
     Indication: CHRONIC HEPATITIS C
     Dosage: 800 MG, 3 TIMES A DAY
     Route: 048
     Dates: start: 20121220, end: 20121223
  2. VICTRELIS [Suspect]
     Dosage: 800 MG, Q8H
     Route: 048
     Dates: start: 20130220
  3. REBETOL [Suspect]
     Indication: CHRONIC HEPATITIS C
     Dosage: UNK
     Dates: start: 20121122, end: 20121219
  4. REBETOL [Suspect]
     Dosage: UNK
     Dates: end: 20121223
  5. PEGASYS [Suspect]
     Dosage: UNK
     Dates: start: 20121122, end: 20121223

REACTIONS (8)
  - Pneumonia staphylococcal [Recovered/Resolved]
  - Anaemia [Unknown]
  - Decreased appetite [Unknown]
  - Fatigue [Unknown]
  - Local swelling [Unknown]
  - Nausea [Unknown]
  - Hypoaesthesia [Unknown]
  - Decreased appetite [Unknown]
